FAERS Safety Report 7955421-7 (Version None)
Quarter: 2011Q4

REPORT INFORMATION
  Report Type: 
  Country: None (occurrence: None)
  Receive Date: 20111202
  Receipt Date: 20111118
  Transmission Date: 20120403
  Serious: Yes (Death, Other)
  Sender: FDA-Public Use
  Company Number: JP-ROCHE-GNE323880

PATIENT
  Age: 84 Year
  Sex: Male

DRUGS (5)
  1. RADICUT [Concomitant]
     Indication: PRODUCT USED FOR UNKNOWN INDICATION
     Dosage: 30 MG, BID
     Dates: start: 20101121, end: 20101126
  2. WARFARIN SODIUM [Concomitant]
     Indication: PRODUCT USED FOR UNKNOWN INDICATION
     Dosage: UNK
     Route: 048
     Dates: start: 20101125
  3. ASPIRIN [Concomitant]
     Indication: PRODUCT USED FOR UNKNOWN INDICATION
  4. ACTIVASE [Suspect]
     Indication: EMBOLIC STROKE
     Dosage: 29 ML, QD
     Route: 042
     Dates: start: 20101121, end: 20101121
  5. GLYCEOL [Concomitant]
     Indication: PRODUCT USED FOR UNKNOWN INDICATION
     Dosage: UNK
     Dates: start: 20101122, end: 20101126

REACTIONS (2)
  - CEREBRAL HAEMORRHAGE [None]
  - CARDIAC FAILURE [None]
